FAERS Safety Report 17255975 (Version 1)
Quarter: 2020Q1

REPORT INFORMATION
  Report Type: Spontaneous
  Country: US (occurrence: US)
  Receive Date: 20200110
  Receipt Date: 20200110
  Transmission Date: 20200409
  Serious: Yes (Hospitalization)
  Sender: FDA-Public Use
  Company Number: US-EMCURE PHARMACEUTICALS LTD-2019-EPL-1306

PATIENT
  Age: 57 Year
  Sex: Female

DRUGS (2)
  1. VANCOMYCIN HYDROCHLORIDE. [Suspect]
     Active Substance: VANCOMYCIN HYDROCHLORIDE
     Indication: OSTEOMYELITIS
     Dosage: 1 GRAM, BID
     Route: 042
  2. CEFEPIME [Concomitant]
     Active Substance: CEFEPIME HYDROCHLORIDE
     Indication: OSTEOMYELITIS
     Dosage: 2 GRAM, EVERY 8 HRS
     Route: 042

REACTIONS (4)
  - Eosinophils urine present [Unknown]
  - Antibiotic level above therapeutic [Unknown]
  - Renal tubular necrosis [Recovered/Resolved]
  - Acute kidney injury [Not Recovered/Not Resolved]
